FAERS Safety Report 8924265 (Version 1)
Quarter: 2012Q4

REPORT INFORMATION
  Report Type: Spontaneous
  Country: US (occurrence: None)
  Receive Date: 20121121
  Receipt Date: 20121121
  Transmission Date: 20130627
  Serious: No
  Sender: FDA-Public Use
  Company Number: None

PATIENT
  Sex: Female
  Weight: 70 kg

DRUGS (1)
  1. ESCITALOPRAM 20MG [Suspect]
     Indication: ANXIETY DEPRESSION
     Dosage: Escitalopram 20mg qd po
     Route: 048
     Dates: start: 20120901, end: 20121119

REACTIONS (4)
  - Headache [None]
  - Lacrimation increased [None]
  - Anxiety [None]
  - Product substitution issue [None]
